FAERS Safety Report 21732650 (Version 1)
Quarter: 2022Q4

REPORT INFORMATION
  Report Type: Spontaneous
  Country: GB (occurrence: GB)
  Receive Date: 20221215
  Receipt Date: 20221215
  Transmission Date: 20230113
  Serious: Yes (Other)
  Sender: FDA-Public Use
  Company Number: None

PATIENT
  Age: 73 Year
  Sex: Male
  Weight: 78 kg

DRUGS (7)
  1. ATORVASTATIN [Suspect]
     Active Substance: ATORVASTATIN
     Route: 048
     Dates: start: 20220916
  2. AMLODIPINE [Concomitant]
     Active Substance: AMLODIPINE BESYLATE
     Dates: start: 20221021, end: 20221118
  3. ASPIRIN [Concomitant]
     Active Substance: ASPIRIN
     Dosage: TAKE ONE TABLET ONCE A DAY AFTER FOOD
     Route: 048
     Dates: start: 20221202
  4. SARS-COV-2 [Concomitant]
     Active Substance: SARS-COV-2
     Dosage: 0.5 ML INTRAMUSCULAR
     Route: 030
     Dates: start: 20220927
  5. INDAPAMIDE [Concomitant]
     Active Substance: INDAPAMIDE
     Dosage: ONE TO BE TAKEN EACH MORNING
     Dates: start: 20191126
  6. LANSOPRAZOLE [Concomitant]
     Active Substance: LANSOPRAZOLE
     Dosage: ONE TO BE TAKEN EACH MORNING
     Dates: start: 20191126
  7. LOSARTAN. [Concomitant]
     Dates: start: 20191126

REACTIONS (2)
  - Bedridden [Recovered/Resolved]
  - Myalgia [Recovered/Resolved]

NARRATIVE: CASE EVENT DATE: 20221107
